FAERS Safety Report 7048275-7 (Version None)
Quarter: 2010Q4

REPORT INFORMATION
  Report Type: 
  Country: None (occurrence: None)
  Receive Date: 20101014
  Receipt Date: 20101014
  Transmission Date: 20110411
  Serious: Yes (Hospitalization, Other)
  Sender: FDA-Public Use
  Company Number: None

PATIENT
  Age: 27 Year
  Sex: Male
  Weight: 99.7913 kg

DRUGS (2)
  1. BUPROPION HCL [Suspect]
     Indication: ATTENTION DEFICIT/HYPERACTIVITY DISORDER
     Dosage: 150 MG ONCE IN MORNING PO
     Route: 048
     Dates: start: 20100121, end: 20100831
  2. BUPROPION HCL [Suspect]
     Indication: ATTENTION DEFICIT/HYPERACTIVITY DISORDER
     Dosage: 150 MG ONCE AT NOON PO
     Route: 048
     Dates: start: 20100121, end: 20100831

REACTIONS (10)
  - ASTHENIA [None]
  - BALANCE DISORDER [None]
  - CONSCIOUSNESS FLUCTUATING [None]
  - DIZZINESS [None]
  - FALL [None]
  - GAIT DISTURBANCE [None]
  - IMPAIRED WORK ABILITY [None]
  - LOSS OF CONSCIOUSNESS [None]
  - PALPITATIONS [None]
  - VESTIBULAR FUNCTION TEST ABNORMAL [None]
